FAERS Safety Report 5072961-1 (Version None)
Quarter: 2006Q3

REPORT INFORMATION
  Report Type: 
  Country: None (occurrence: None)
  Receive Date: 20060802
  Receipt Date: 20060717
  Transmission Date: 20061208
  Serious: Yes (Other)
  Sender: FDA-Public Use
  Company Number: BR-2006-019680

PATIENT
  Age: 33 Year
  Sex: Female
  Weight: 67 kg

DRUGS (2)
  1. BETASERON [Suspect]
     Indication: MULTIPLE SCLEROSIS
     Dosage: 8 MIU, SUBCUTANEOUS
     Route: 058
     Dates: start: 20020301, end: 20060618
  2. PURAN T4 (LEVOTHYROXINE SODIUM) [Concomitant]

REACTIONS (5)
  - AORTIC VALVE INCOMPETENCE [None]
  - HEPATIC INFECTION [None]
  - PERICARDIAL EFFUSION [None]
  - SPLENIC INFECTION [None]
  - TRICUSPID VALVE INCOMPETENCE [None]
